FAERS Safety Report 10205727 (Version 1)
Quarter: 2014Q2

REPORT INFORMATION
  Report Type: Spontaneous
  Country: US (occurrence: US)
  Receive Date: 20140530
  Receipt Date: 20140530
  Transmission Date: 20141212
  Serious: No
  Sender: FDA-Public Use
  Company Number: US-ASTRAZENECA-2014SE35361

PATIENT
  Age: 58 Year
  Sex: Female
  Weight: 108.4 kg

DRUGS (5)
  1. SEROQUEL XR [Suspect]
     Indication: BIPOLAR DISORDER
     Route: 048
     Dates: end: 201308
  2. SEROQUEL XR [Suspect]
     Indication: BIPOLAR DISORDER
     Route: 048
     Dates: start: 20140403
  3. LAMICTAL [Concomitant]
     Indication: BIPOLAR DISORDER
     Route: 048
     Dates: start: 201404
  4. SYNTHROID [Concomitant]
     Indication: THYROID DISORDER
     Dosage: 100 MCG DAILY
     Route: 048
  5. XANAX [Concomitant]
     Indication: ANXIETY
     Route: 048
     Dates: start: 2011

REACTIONS (9)
  - Joint stiffness [Unknown]
  - Joint range of motion decreased [Unknown]
  - Rash [Unknown]
  - Skin turgor decreased [Unknown]
  - Back disorder [Unknown]
  - Musculoskeletal stiffness [Unknown]
  - Arthralgia [Unknown]
  - Musculoskeletal stiffness [Unknown]
  - Weight increased [Unknown]
